FAERS Safety Report 16398256 (Version 1)
Quarter: 2019Q2

REPORT INFORMATION
  Report Type: Spontaneous
  Country: US (occurrence: US)
  Receive Date: 20190606
  Receipt Date: 20190606
  Transmission Date: 20190711
  Serious: No
  Sender: FDA-Public Use
  Company Number: US-009507513-1906USA001438

PATIENT
  Age: 14 Year
  Sex: Male

DRUGS (1)
  1. PRINIVIL [Suspect]
     Active Substance: LISINOPRIL
     Indication: CONGESTIVE CARDIOMYOPATHY
     Dosage: UNK
     Route: 048

REACTIONS (1)
  - Fatigue [Unknown]
